FAERS Safety Report 21004881 (Version 1)
Quarter: 2022Q3

REPORT INFORMATION
  Report Type: Report from Study
  Country: CO (occurrence: CO)
  Receive Date: 20220624
  Receipt Date: 20220624
  Transmission Date: 20221027
  Serious: Yes (Other)
  Sender: FDA-Public Use
  Company Number: CO-NOVARTISPH-NVSC2022CO141701

PATIENT
  Age: 81 Year
  Sex: Female
  Weight: 52 kg

DRUGS (5)
  1. LOSARTAN [Suspect]
     Active Substance: LOSARTAN
     Indication: Hypertension
     Dosage: 50 MG, QD (6 YEARS AGO (DOES NOT REFER THE EXACT DATE)
     Route: 048
  2. CARVEDILOL [Suspect]
     Active Substance: CARVEDILOL
     Indication: Arrhythmia
     Dosage: 6.25 MG, QD
     Route: 048
  3. LEVOTHYROXINE [Concomitant]
     Active Substance: LEVOTHYROXINE
     Indication: Hyperthyroidism
     Dosage: 75 MG, QD, 3 YEARS AGO (DOES NOT REFER THE EXACT DATE)
     Route: 048
  4. ACETAMINOPHEN [Concomitant]
     Active Substance: ACETAMINOPHEN
     Indication: Headache
     Dosage: 250 MG, QD, 6 YEARS AGO (DOES NOT REFER THE EXACT DATE)
     Route: 048
  5. OMEPRAZOLE [Concomitant]
     Active Substance: OMEPRAZOLE
     Indication: Reflux gastritis
     Dosage: 20 MG, 2 TO 3 TIMES PER WEEK, 6 YEARS AGO (DOES NOT REFER THE EXACT DATE)
     Route: 048

REACTIONS (5)
  - Thrombosis [Unknown]
  - Eye pain [Unknown]
  - Vision blurred [Unknown]
  - Stress [Unknown]
  - Chronic obstructive pulmonary disease [Unknown]

NARRATIVE: CASE EVENT DATE: 20220201
